FAERS Safety Report 16509326 (Version 1)
Quarter: 2019Q3

REPORT INFORMATION
  Report Type: Report from Study
  Country: US (occurrence: US)
  Receive Date: 20190702
  Receipt Date: 20190702
  Transmission Date: 20191004
  Serious: Yes (Hospitalization)
  Sender: FDA-Public Use
  Company Number: US-AMGEN-USACT2019102243

PATIENT
  Age: 19 Year
  Sex: Male
  Weight: 75.2 kg

DRUGS (5)
  1. BACTRIM [Concomitant]
     Active Substance: SULFAMETHOXAZOLE\TRIMETHOPRIM
     Indication: PROPHYLAXIS
     Dosage: UNK
  2. VORI [Concomitant]
     Indication: PROPHYLAXIS
     Dosage: UNK
  3. BLINATUMOMAB [Suspect]
     Active Substance: BLINATUMOMAB
     Indication: B PRECURSOR TYPE ACUTE LEUKAEMIA
     Dosage: 15 MICROGRAM/SQ. METER, QD
     Route: 042
     Dates: start: 20181123, end: 20181221
  4. CIPRO [Concomitant]
     Active Substance: CIPROFLOXACIN HYDROCHLORIDE
     Indication: PROPHYLAXIS
     Dosage: UNK
  5. ACYCLOVIR [ACICLOVIR] [Concomitant]
     Active Substance: ACYCLOVIR
     Indication: PROPHYLAXIS
     Dosage: UNK

REACTIONS (4)
  - Hemiparesis [Recovered/Resolved]
  - Paraesthesia [Recovered/Resolved]
  - Confusional state [Recovered/Resolved]
  - Anxiety [Recovered/Resolved]

NARRATIVE: CASE EVENT DATE: 20181216
